FAERS Safety Report 8427619-5 (Version None)
Quarter: 2012Q2

REPORT INFORMATION
  Report Type: 
  Country: None (occurrence: None)
  Receive Date: 20120323
  Receipt Date: 20111129
  Transmission Date: 20120825
  Serious: Yes (Hospitalization)
  Sender: FDA-Public Use
  Company Number: 163-21880-11113996

PATIENT
  Age: 63 Year
  Sex: Male

DRUGS (3)
  1. ALLOPURINOL [Concomitant]
  2. REVLIMID [Suspect]
     Indication: LYMPHOMA
     Dosage: 25 MG, 21, PO
     Route: 048
     Dates: start: 20111018
  3. ASPIRIN [Concomitant]

REACTIONS (1)
  - GOUT [None]
